FAERS Safety Report 7883872-8 (Version None)
Quarter: 2011Q4

REPORT INFORMATION
  Report Type: 
  Country: None (occurrence: None)
  Receive Date: 20111031
  Receipt Date: 20111018
  Transmission Date: 20120403
  Serious: Yes (Other)
  Sender: FDA-Public Use
  Company Number: JP-ACCORD-011100

PATIENT
  Age: 75 Year
  Sex: Female

DRUGS (3)
  1. TACROLIMUS [Suspect]
     Indication: RHEUMATOID ARTHRITIS
     Dosage: 1.50-MG-1.0DAYS
  2. SALAZOSULFAPYRIDINE (SALAZOSULFAPYRIDINE) [Concomitant]
  3. PREDNISOLONE [Suspect]
     Indication: RHEUMATOID ARTHRITIS
     Dosage: 50-MG-1.0DAYS

REACTIONS (3)
  - OFF LABEL USE [None]
  - BLOOD LACTATE DEHYDROGENASE INCREASED [None]
  - ALVEOLITIS ALLERGIC [None]
